FAERS Safety Report 8901454 (Version 1)
Quarter: 2012Q4

REPORT INFORMATION
  Report Type: 
  Country: US (occurrence: US)
  Receive Date: 20121108
  Receipt Date: 20121108
  Transmission Date: 20130627
  Serious: No
  Sender: FDA-Public Use
  Company Number: US-ASTRAZENECA-2012SE80920

PATIENT
  Age: 46 Year
  Sex: Female

DRUGS (3)
  1. SYMBICORT PMDI [Suspect]
     Route: 055
  2. NEXIUM [Suspect]
     Route: 048
  3. SEROQUEL [Suspect]
     Route: 048

REACTIONS (5)
  - Adverse drug reaction [Unknown]
  - Adverse event [Unknown]
  - Condition aggravated [Unknown]
  - Pneumonitis [Unknown]
  - Dizziness [Unknown]
